FAERS Safety Report 15651648 (Version 3)
Quarter: 2019Q1

REPORT INFORMATION
  Report Type: Spontaneous
  Country: US (occurrence: US)
  Receive Date: 20181123
  Receipt Date: 20190104
  Transmission Date: 20190417
  Serious: No
  Sender: FDA-Public Use
  Company Number: US-ASTRAZENECA-2018SF41976

PATIENT
  Age: 25778 Day
  Sex: Female

DRUGS (2)
  1. VENTOLIN [Concomitant]
     Active Substance: ALBUTEROL SULFATE
  2. SYMBICORT [Suspect]
     Active Substance: BUDESONIDE\FORMOTEROL FUMARATE DIHYDRATE
     Indication: BRONCHITIS CHRONIC
     Dosage: 160/4.5UG, TWO INHALATIONS TWO TIMES A DAY
     Route: 055
     Dates: start: 2013

REACTIONS (9)
  - Device issue [Unknown]
  - Product dose omission [Unknown]
  - Malaise [Unknown]
  - Panic attack [Unknown]
  - Somnolence [Unknown]
  - Dyspnoea [Unknown]
  - Irritability [Unknown]
  - Bronchitis [Not Recovered/Not Resolved]
  - Insomnia [Unknown]

NARRATIVE: CASE EVENT DATE: 20180831
